FAERS Safety Report 14288324 (Version 1)
Quarter: 2017Q4

REPORT INFORMATION
  Report Type: Report from Study
  Country: FR (occurrence: FR)
  Receive Date: 20171214
  Receipt Date: 20171214
  Transmission Date: 20180321
  Serious: Yes (Other)
  Sender: FDA-Public Use
  Company Number: FR-APOPHARMA INC-2017AP006140

PATIENT
  Age: 45 Year
  Sex: Male
  Weight: 71 kg

DRUGS (2)
  1. DEFERIPRONE [Suspect]
     Active Substance: DEFERIPRONE
     Indication: PARKINSON^S DISEASE
     Dosage: 30 MG/KG, QD
     Route: 048
     Dates: start: 20160928, end: 20161211
  2. DIPHTHERIA VACCINE W/POLIO VACCINE/TETANUS VA [Concomitant]
     Indication: IMMUNISATION
     Dosage: UNK, UNKNOWN
     Route: 030
     Dates: start: 20160921, end: 20160921

REACTIONS (1)
  - Condition aggravated [Recovered/Resolved]

NARRATIVE: CASE EVENT DATE: 20161007
